FAERS Safety Report 5413053-9 (Version None)
Quarter: 2007Q3

REPORT INFORMATION
  Report Type: 
  Country: None (occurrence: None)
  Receive Date: 20070809
  Receipt Date: 20070725
  Transmission Date: 20080115
  Serious: Yes (Hospitalization)
  Sender: FDA-Public Use
  Company Number: 2007000833

PATIENT
  Age: 70 Year
  Sex: Female

DRUGS (3)
  1. ERLOTINIB (TABLET) (ERLOTINIB HCL) [Suspect]
     Indication: NON-SMALL CELL LUNG CANCER
     Dosage: 150 MG (QD), ORAL
     Route: 048
     Dates: start: 20070131, end: 20070425
  2. BEVACIZUMAB(INJECTION FOR INFUSION) [Suspect]
     Indication: NON-SMALL CELL LUNG CANCER
     Dosage: 9.25 MG, INTRAVENOUS
     Route: 042
     Dates: start: 20070131, end: 20070425
  3. IMMUNOTHERAPY [Concomitant]

REACTIONS (7)
  - ATRIAL FIBRILLATION [None]
  - NEOPLASM PROGRESSION [None]
  - NON-SMALL CELL LUNG CANCER STAGE IV [None]
  - PERICARDIAL EFFUSION MALIGNANT [None]
  - PULMONARY CONGESTION [None]
  - SYNCOPE [None]
  - TACHYCARDIA [None]
